FAERS Safety Report 24149892 (Version 2)
Quarter: 2024Q3

REPORT INFORMATION
  Report Type: Spontaneous
  Country: US (occurrence: US)
  Receive Date: 20240730
  Receipt Date: 20240730
  Transmission Date: 20241017
  Serious: Yes (Hospitalization)
  Sender: ROCHE
  Company Number: US-ROCHE-10000031745

PATIENT
  Age: 34 Year
  Sex: Female
  Weight: 114.76 kg

DRUGS (1)
  1. OCREVUS [Suspect]
     Active Substance: OCRELIZUMAB
     Indication: Relapsing-remitting multiple sclerosis
     Dosage: ONGOING YES
     Route: 042
     Dates: start: 202310

REACTIONS (9)
  - Uterine mass [Recovered/Resolved]
  - Multiple sclerosis pseudo relapse [Not Recovered/Not Resolved]
  - Therapeutic response shortened [Unknown]
  - Hypoaesthesia [Unknown]
  - Pain [Unknown]
  - Asthenia [Unknown]
  - Abscess [Recovered/Resolved]
  - Multiple sclerosis relapse [Unknown]
  - Weight increased [Not Recovered/Not Resolved]

NARRATIVE: CASE EVENT DATE: 20240101
